FAERS Safety Report 22697076 (Version 2)
Quarter: 2024Q2

REPORT INFORMATION
  Report Type: Spontaneous
  Country: TW (occurrence: TW)
  Receive Date: 20230712
  Receipt Date: 20240528
  Transmission Date: 20240716
  Serious: Yes (Other)
  Sender: FDA-Public Use
  Company Number: TW-SUN PHARMACEUTICAL INDUSTRIES LTD-2023RR-384574

PATIENT
  Age: 52 Year
  Sex: Male

DRUGS (3)
  1. QUETIAPINE [Suspect]
     Active Substance: QUETIAPINE
     Indication: Delirium
     Dosage: UNK
     Route: 065
     Dates: start: 20200329
  2. QUETIAPINE [Suspect]
     Active Substance: QUETIAPINE
     Dosage: HIGH DOSE
     Route: 065
     Dates: start: 20200402, end: 20200409
  3. QUETIAPINE [Suspect]
     Active Substance: QUETIAPINE
     Dosage: TAPERED
     Route: 065
     Dates: start: 20200422, end: 20200423

REACTIONS (1)
  - Hyponatraemia [Recovering/Resolving]
